FAERS Safety Report 7832907-7 (Version None)
Quarter: 2011Q4

REPORT INFORMATION
  Report Type: 
  Country: None (occurrence: None)
  Receive Date: 20111019
  Receipt Date: 20111005
  Transmission Date: 20120403
  Serious: Yes (Other)
  Sender: FDA-Public Use
  Company Number: US-006532

PATIENT
  Sex: Female
  Weight: 79.3795 kg

DRUGS (3)
  1. PRENATAL VITAMINS /01549301/ [Concomitant]
  2. PROGESTERONE [Concomitant]
  3. MENOPUR [Suspect]
     Indication: IN VITRO FERTILISATION
     Dates: start: 20110801, end: 20110801

REACTIONS (2)
  - MATERNAL EXPOSURE DURING PREGNANCY [None]
  - ABORTION SPONTANEOUS [None]
